FAERS Safety Report 4595001-7 (Version None)
Quarter: 2005Q1

REPORT INFORMATION
  Report Type: 
  Country: None (occurrence: None)
  Receive Date: 20050223
  Receipt Date: 20050215
  Transmission Date: 20050727
  Serious: Yes (Other)
  Sender: FDA-Public Use
  Company Number: 2005031814

PATIENT
  Age: 63 Year
  Sex: Male

DRUGS (2)
  1. ATORVASTATIN (ATORVASTATIN) [Suspect]
     Indication: BLOOD CHOLESTEROL INCREASED
     Dosage: (10 MG), ORAL
     Route: 048
     Dates: start: 20041209, end: 20041228
  2. MELOXICAM [Concomitant]

REACTIONS (1)
  - HEPATITIS [None]
